FAERS Safety Report 18573051 (Version 1)
Quarter: 2020Q4

REPORT INFORMATION
  Report Type: Spontaneous
  Country: US (occurrence: US)
  Receive Date: 20201203
  Receipt Date: 20201203
  Transmission Date: 20210114
  Serious: No
  Sender: FDA-Public Use
  Company Number: US-ALLERGAN-2044023US

PATIENT
  Sex: Male

DRUGS (1)
  1. DALVANCE [Suspect]
     Active Substance: DALBAVANCIN
     Indication: OSTEOMYELITIS
     Dosage: 1500 MG

REACTIONS (3)
  - Diarrhoea [Unknown]
  - Off label use [Unknown]
  - Nausea [Unknown]
